FAERS Safety Report 7714676-4 (Version None)
Quarter: 2011Q3

REPORT INFORMATION
  Report Type: 
  Country: None (occurrence: None)
  Receive Date: 20110822
  Receipt Date: 20110804
  Transmission Date: 20111222
  Serious: Yes (Death, Other)
  Sender: FDA-Public Use
  Company Number: 2011MA011477

PATIENT
  Age: 37 Year

DRUGS (4)
  1. METHADONE HCL [Suspect]
     Dosage: 0.7 MG/L
  2. D-9-DHC (NO PREF. NAME) [Suspect]
  3. OLANZAPINE [Suspect]
  4. IBUPROFEN [Suspect]

REACTIONS (3)
  - TOXICITY TO VARIOUS AGENTS [None]
  - MULTIPLE DRUG OVERDOSE [None]
  - ARRHYTHMIA [None]
